FAERS Safety Report 7363921-6 (Version None)
Quarter: 2011Q1

REPORT INFORMATION
  Report Type: 
  Country: None (occurrence: None)
  Receive Date: 20110321
  Receipt Date: 20110119
  Transmission Date: 20110831
  Serious: No
  Sender: FDA-Public Use
  Company Number: US-BAYER-2011-006997

PATIENT
  Sex: Female
  Weight: 57 kg

DRUGS (8)
  1. TOPAMAX [Concomitant]
  2. FLEXERIL [Concomitant]
  3. LEXAPRO [Concomitant]
  4. ALEVE (CAPLET) [Suspect]
     Indication: PAIN
  5. METHOTREXATE [Concomitant]
  6. DILANTIN [Concomitant]
  7. ZOCOR [Concomitant]
  8. ALEVE (CAPLET) [Suspect]
     Indication: ARTHRALGIA
     Dosage: CONSUMER HAS BEEN USING ALEVE EVERY DAY FOR YEARS. BOTTLE COUNT 130CT
     Route: 048

REACTIONS (2)
  - ARTHRALGIA [None]
  - PAIN [None]
